FAERS Safety Report 18893961 (Version 1)
Quarter: 2021Q1

REPORT INFORMATION
  Report Type: Report from Study
  Country: MA (occurrence: MA)
  Receive Date: 20210215
  Receipt Date: 20210215
  Transmission Date: 20210420
  Serious: Yes (Hospitalization)
  Sender: FDA-Public Use
  Company Number: NVSC2020MA323241

PATIENT
  Sex: Female

DRUGS (1)
  1. COSENTYX [Suspect]
     Active Substance: SECUKINUMAB
     Indication: ANKYLOSING SPONDYLITIS
     Dosage: 150 MG, UNKNOWN
     Route: 058
     Dates: start: 20201126, end: 20210117

REACTIONS (7)
  - Diarrhoea [Unknown]
  - Vulvovaginal candidiasis [Unknown]
  - Mouth ulceration [Unknown]
  - Oral candidiasis [Unknown]
  - Respiratory disorder [Unknown]
  - Skin lesion [Unknown]
  - Pyrexia [Unknown]
